FAERS Safety Report 26059782 (Version 2)
Quarter: 2025Q4

REPORT INFORMATION
  Report Type: Spontaneous
  Country: CO (occurrence: CO)
  Receive Date: 20251118
  Receipt Date: 20251120
  Transmission Date: 20260118
  Serious: Yes (Other)
  Sender: SANDOZ
  Company Number: CO-002147023-NVSC2025CO169103

PATIENT
  Age: 45 Year
  Sex: Female
  Weight: 72 kg

DRUGS (3)
  1. PREDNISOLONE [Suspect]
     Active Substance: PREDNISOLONE
     Indication: Product used for unknown indication
     Dosage: UNK
     Route: 065
  2. XOLAIR [Suspect]
     Active Substance: OMALIZUMAB
     Indication: Asthma
     Dosage: 150 MG, QMO
     Route: 058
     Dates: start: 20220101
  3. PREDNISOLONE [Concomitant]
     Active Substance: PREDNISOLONE
     Indication: Product used for unknown indication
     Dosage: UNK
     Route: 065

REACTIONS (7)
  - Urticarial vasculitis [Unknown]
  - Eosinophilic cellulitis [Unknown]
  - Weight increased [Unknown]
  - Ear infection [Unknown]
  - Ear pain [Unknown]
  - Otorrhoea [Unknown]
  - Influenza [Unknown]

NARRATIVE: CASE EVENT DATE: 20251110
